FAERS Safety Report 6903570-4 (Version None)
Quarter: 2010Q3

REPORT INFORMATION
  Report Type: 
  Country: None (occurrence: None)
  Receive Date: 20100708
  Receipt Date: 20100429
  Transmission Date: 20110219
  Serious: Yes (Other)
  Sender: FDA-Public Use
  Company Number: 2010055005

PATIENT
  Age: 62 Year
  Sex: Female
  Weight: 48.1 kg

DRUGS (1)
  1. CHANTIX [Suspect]
     Indication: SMOKING CESSATION THERAPY
     Dosage: ORAL
     Route: 048
     Dates: start: 20100411, end: 20100422

REACTIONS (2)
  - AGITATION [None]
  - DRUG INEFFECTIVE [None]
